FAERS Safety Report 14311613 (Version 1)
Quarter: 2017Q4

REPORT INFORMATION
  Report Type: Spontaneous
  Country: JP (occurrence: JP)
  Receive Date: 20171221
  Receipt Date: 20171221
  Transmission Date: 20180321
  Serious: Yes (Other)
  Sender: FDA-Public Use
  Company Number: JP-SUN PHARMACEUTICAL INDUSTRIES LTD-2017R3-157115

PATIENT
  Age: 38 Year
  Sex: Female

DRUGS (3)
  1. APRESOLINE HYDROCHLORIDE [Suspect]
     Active Substance: HYDRALAZINE HYDROCHLORIDE
     Indication: HYPERTENSION
     Route: 048
  2. METHYLDOPA. [Suspect]
     Active Substance: METHYLDOPA
     Indication: HYPERTENSION
     Route: 065
  3. NIFEDIPINE. [Suspect]
     Active Substance: NIFEDIPINE
     Indication: HYPERTENSION
     Route: 065

REACTIONS (8)
  - Foetal growth restriction [Unknown]
  - Exposure during pregnancy [Unknown]
  - Visual acuity reduced [Unknown]
  - Caesarean section [Unknown]
  - Premature delivery [Unknown]
  - Renal impairment [Unknown]
  - Urine protein/creatinine ratio increased [Unknown]
  - Macular oedema [Unknown]
